FAERS Safety Report 9001916 (Version 1)
Quarter: 2013Q1

REPORT INFORMATION
  Report Type: Report from Study
  Country: US (occurrence: US)
  Receive Date: 20130107
  Receipt Date: 20130107
  Transmission Date: 20140127
  Serious: Yes (Death)
  Sender: FDA-Public Use
  Company Number: US-ROCHE-1176697

PATIENT
  Age: 57 Year
  Sex: Female

DRUGS (12)
  1. CAPECITABINE [Suspect]
     Indication: PRODUCT USED FOR UNKNOWN INDICATION
     Route: 065
  2. ATIVAN [Concomitant]
     Route: 048
  3. GLYCEOL [Concomitant]
     Route: 048
  4. PAXIL [Concomitant]
     Route: 048
  5. TENORMIN [Concomitant]
     Route: 048
  6. GLUCOPHAGE [Concomitant]
     Route: 048
  7. TYLENOL [Concomitant]
     Route: 065
  8. VICODIN [Concomitant]
     Route: 048
  9. TRAVATAN [Concomitant]
     Dosage: 1 GGT
     Route: 065
  10. ROBITUSSIN AC (UNITED STATES) [Concomitant]
     Route: 048
  11. ALBETOL [Concomitant]
     Dosage: ONE PUFF
     Route: 065
  12. GLIPIZIDE [Concomitant]
     Route: 048

REACTIONS (2)
  - Death [Fatal]
  - Diarrhoea [Unknown]
